FAERS Safety Report 8770651 (Version 2)
Quarter: 2012Q4

REPORT INFORMATION
  Report Type: 
  Country: IT (occurrence: IT)
  Receive Date: 20120906
  Receipt Date: 20120914
  Transmission Date: 20130627
  Serious: Yes (Other)
  Sender: FDA-Public Use
  Company Number: IT-RANBAXY-2012RR-59715

PATIENT
  Age: 69 Year
  Sex: Female

DRUGS (1)
  1. AMOXICILLIN TRIHYDRATE/CLAVULANIC ACID [Suspect]
     Indication: ABSCESS
     Dosage: 2 g/day
     Route: 065

REACTIONS (1)
  - Pemphigus [Recovered/Resolved]
